FAERS Safety Report 15835483 (Version 1)
Quarter: 2019Q1

REPORT INFORMATION
  Report Type: Report from Study
  Country: KR (occurrence: KR)
  Receive Date: 20190117
  Receipt Date: 20190117
  Transmission Date: 20190417
  Serious: Yes (Other)
  Sender: FDA-Public Use
  Company Number: PHHY2018KR200203

PATIENT

DRUGS (2)
  1. LUCENTIS [Suspect]
     Active Substance: RANIBIZUMAB
     Indication: RETINAL VEIN OCCLUSION
     Dosage: UNK
     Route: 031
  2. ALCAINE [Suspect]
     Active Substance: PROPARACAINE HYDROCHLORIDE
     Indication: PRODUCT USED FOR UNKNOWN INDICATION
     Route: 065

REACTIONS (7)
  - Glaucoma [Unknown]
  - Lacrimal disorder [Unknown]
  - Keratitis [Unknown]
  - Normal tension glaucoma [Unknown]
  - Cataract [Unknown]
  - Refraction disorder [Unknown]
  - Macular degeneration [Unknown]
